FAERS Safety Report 21765944 (Version 1)
Quarter: 2022Q4

REPORT INFORMATION
  Report Type: Spontaneous
  Country: IN (occurrence: IN)
  Receive Date: 20221222
  Receipt Date: 20221222
  Transmission Date: 20230113
  Serious: Yes (Other)
  Sender: FDA-Public Use
  Company Number: IN-STERISCIENCE B.V.-2022-ST-000307

PATIENT
  Weight: 1.8 kg

DRUGS (12)
  1. MIDAZOLAM [Suspect]
     Active Substance: MIDAZOLAM
     Indication: Product used for unknown indication
     Dosage: UNK
     Route: 064
  2. LABETALOL [Suspect]
     Active Substance: LABETALOL\LABETALOL HYDROCHLORIDE
     Indication: Product used for unknown indication
     Dosage: UNK
     Route: 064
  3. MAGNESIUM SULFATE [Suspect]
     Active Substance: MAGNESIUM SULFATE
     Indication: Product used for unknown indication
     Dosage: PATIENT MOTHER DOSE WAS 2 GRAM BOLUS AND 1 G/H INFUSION
     Route: 064
  4. PROPOFOL [Suspect]
     Active Substance: PROPOFOL
     Indication: Product used for unknown indication
     Dosage: PATIENT MOTHER DOSE WAS 3 MILLIGRAM/KILOGRAM
     Route: 064
  5. PROPOFOL [Suspect]
     Active Substance: PROPOFOL
     Dosage: PATIENT MOTHER DOSE WAS 8 MILLIGRAM/KILOGRAM/HOUR
     Route: 064
  6. ATRACURIUM BESYLATE [Suspect]
     Active Substance: ATRACURIUM BESYLATE
     Indication: Product used for unknown indication
     Dosage: PATIENT MOTHER DOSE WAS 1 MILLIGRAM/KILOGRAM
     Route: 064
  7. OXYTOCIN [Suspect]
     Active Substance: OXYTOCIN
     Indication: Product used for unknown indication
     Dosage: UNK
     Route: 064
  8. LACTATED RINGERS SOLUTION [Suspect]
     Active Substance: CALCIUM CHLORIDE\POTASSIUM CHLORIDE\SODIUM CHLORIDE\SODIUM LACTATE
     Indication: Product used for unknown indication
     Dosage: UNK
     Route: 064
  9. GELATIN [Suspect]
     Active Substance: GELATIN
     Indication: Product used for unknown indication
     Dosage: UNK
     Route: 064
  10. FENTANYL [Suspect]
     Active Substance: FENTANYL
     Indication: Product used for unknown indication
     Dosage: UNK
     Route: 064
  11. FUROSEMIDE [Suspect]
     Active Substance: FUROSEMIDE
     Indication: Product used for unknown indication
     Dosage: UNK
     Route: 064
  12. UNSPECIFIED INGREDIENT [Suspect]
     Active Substance: UNSPECIFIED INGREDIENT
     Indication: Product used for unknown indication
     Dosage: UNK
     Route: 064

REACTIONS (4)
  - Premature baby [Unknown]
  - Oxygen saturation decreased [Unknown]
  - Bradycardia neonatal [Unknown]
  - Foetal exposure during pregnancy [Unknown]
